FAERS Safety Report 21151155 (Version 1)
Quarter: 2022Q3

REPORT INFORMATION
  Report Type: Spontaneous
  Country: SK (occurrence: SK)
  Receive Date: 20220730
  Receipt Date: 20220730
  Transmission Date: 20221027
  Serious: Yes (Hospitalization, Other)
  Sender: FDA-Public Use
  Company Number: None

PATIENT
  Sex: Male
  Weight: 71 kg

DRUGS (4)
  1. MEMANTINE [Suspect]
     Active Substance: MEMANTINE
     Indication: Dementia Alzheimer^s type
     Dosage: 20 MILLIGRAM DAILY; STRENGTH:10 MG: 2-0-0
     Route: 065
  2. MIRTAZAPINE [Suspect]
     Active Substance: MIRTAZAPINE
     Indication: Dementia Alzheimer^s type
     Dosage: 45 MILLIGRAM DAILY; STRENGTH:15 MG: 0-0-3
     Route: 065
  3. RISPERIDONE [Suspect]
     Active Substance: RISPERIDONE
     Indication: Dementia Alzheimer^s type
     Dosage: 3 DOSAGE FORMS DAILY; 1/2-1-1/2-0-1, STRENGTH 1MG
     Route: 065
  4. DULOXETINE [Suspect]
     Active Substance: DULOXETINE
     Indication: Dementia Alzheimer^s type
     Dosage: 60 MILLIGRAM DAILY; 1-0-0
     Route: 065

REACTIONS (2)
  - Thrombocytopenia [Recovered/Resolved]
  - Liver disorder [Recovered/Resolved]
